FAERS Safety Report 15936918 (Version 1)
Quarter: 2019Q1

REPORT INFORMATION
  Report Type: Spontaneous
  Country: US (occurrence: US)
  Receive Date: 20190208
  Receipt Date: 20190208
  Transmission Date: 20190417
  Serious: No
  Sender: FDA-Public Use
  Company Number: None

PATIENT
  Age: 72 Year
  Sex: Female
  Weight: 108 kg

DRUGS (7)
  1. IRBESARTAN 300MG(.HAVE 29 PILLS LEFT) BUT NOT IN ORGINAL BOTTLE. [Suspect]
     Active Substance: IRBESARTAN
     Indication: HYPERTENSION
     Route: 048
  2. BYSTOLIC [Concomitant]
     Active Substance: NEBIVOLOL HYDROCHLORIDE
  3. VITAMIN D3 [Concomitant]
     Active Substance: CHOLECALCIFEROL
  4. MULTI-VITIMIN FOR SENIORS [Concomitant]
  5. FLEX SEED OIL [Concomitant]
  6. VITAMIN B12 [Concomitant]
     Active Substance: CYANOCOBALAMIN
  7. WALKING STICK [Concomitant]

REACTIONS (2)
  - Recalled product administered [None]
  - Abdominal pain [None]

NARRATIVE: CASE EVENT DATE: 20190201
